FAERS Safety Report 6251916-5 (Version None)
Quarter: 2009Q2

REPORT INFORMATION
  Report Type: 
  Country: None (occurrence: None)
  Receive Date: 20090629
  Receipt Date: 20090622
  Transmission Date: 20091009
  Serious: Yes (Hospitalization)
  Sender: FDA-Public Use
  Company Number: 2009SP008720

PATIENT
  Age: 81 Year
  Sex: Female

DRUGS (9)
  1. NITRO-DUR [Suspect]
     Indication: CARDIAC FAILURE
     Dosage: 10 MG; QD; TDER
     Route: 062
     Dates: start: 20080801, end: 20090320
  2. RAMIPRIL [Suspect]
     Indication: HYPERTENSIVE HEART DISEASE
     Dosage: 5 MG; QD; PO
     Route: 048
     Dates: start: 20080801, end: 20090325
  3. SERETIDE [Concomitant]
  4. SPIRIVA [Concomitant]
  5. CARDIRENE [Concomitant]
  6. ALDACTONE [Concomitant]
  7. LASIX [Concomitant]
  8. LIMPIDEX [Concomitant]
  9. LEXOTAN [Concomitant]

REACTIONS (3)
  - ATOPY [None]
  - BLOOD IMMUNOGLOBULIN E INCREASED [None]
  - PRURITUS GENERALISED [None]
